FAERS Safety Report 5830964-0 (Version None)
Quarter: 2008Q3

REPORT INFORMATION
  Report Type: 
  Country: None (occurrence: None)
  Receive Date: 20080801
  Receipt Date: 20080304
  Transmission Date: 20090109
  Serious: No
  Sender: FDA-Public Use
  Company Number: US-BRISTOL-MYERS SQUIBB COMPANY-14101620

PATIENT
  Age: 82 Year
  Sex: Female

DRUGS (4)
  1. COUMADIN [Suspect]
     Indication: ATRIAL FIBRILLATION
     Dosage: 1 DOSAGE FORM = 1 TABLET.
     Route: 048
  2. FLECTOR [Suspect]
     Indication: ARTHRALGIA
     Dosage: 1 DOSAGE FORM=1 PATCH.
     Route: 061
     Dates: start: 20080130, end: 20080203
  3. XANAX [Concomitant]
     Indication: ANXIETY
     Route: 048
  4. LASIX [Concomitant]
     Indication: CARDIAC FAILURE CONGESTIVE
     Route: 048

REACTIONS (1)
  - INTERNATIONAL NORMALISED RATIO INCREASED [None]
